FAERS Safety Report 21389504 (Version 2)
Quarter: 2023Q1

REPORT INFORMATION
  Report Type: Spontaneous
  Country: TR (occurrence: TR)
  Receive Date: 20220929
  Receipt Date: 20230216
  Transmission Date: 20230418
  Serious: No
  Sender: FDA-Public Use
  Company Number: TR-TOLMAR, INC.-22TR036747

PATIENT
  Age: 72 Year
  Sex: Male

DRUGS (2)
  1. ELIGARD [Suspect]
     Active Substance: LEUPROLIDE ACETATE
     Indication: Prostate cancer
     Dosage: 45 MILLIGRAM
  2. ELIGARD [Suspect]
     Active Substance: LEUPROLIDE ACETATE
     Dosage: 45 MILLIGRAM
     Dates: start: 20220921

REACTIONS (3)
  - Intercepted product preparation error [Not Recovered/Not Resolved]
  - Device leakage [Not Recovered/Not Resolved]
  - Syringe issue [Not Recovered/Not Resolved]

NARRATIVE: CASE EVENT DATE: 20220921
